FAERS Safety Report 10737041 (Version 1)
Quarter: 2015Q1

REPORT INFORMATION
  Report Type: Spontaneous
  Country: US (occurrence: None)
  Receive Date: 20150122
  Receipt Date: 20150122
  Transmission Date: 20150721
  Serious: Yes (Hospitalization)
  Sender: FDA-Public Use
  Company Number: 2015-US-000572

PATIENT
  Sex: Male
  Weight: 83.9 kg

DRUGS (3)
  1. FLOMAX [Suspect]
     Active Substance: TAMSULOSIN HYDROCHLORIDE
     Indication: PROSTATIC DISORDER
     Route: 048
  2. AMBIEN [Concomitant]
     Active Substance: ZOLPIDEM TARTRATE
  3. XYREM [Suspect]
     Active Substance: SODIUM OXYBATE
     Indication: SLEEP DISORDER
     Route: 048
     Dates: start: 200411, end: 2005

REACTIONS (6)
  - Prostatic disorder [None]
  - Urinary incontinence [None]
  - Therapeutic response changed [None]
  - Off label use [None]
  - Cardiac disorder [None]
  - Pollakiuria [None]

NARRATIVE: CASE EVENT DATE: 2004
